FAERS Safety Report 9472972 (Version 2)
Quarter: 2013Q3

REPORT INFORMATION
  Report Type: Spontaneous
  Country: US (occurrence: US)
  Receive Date: 20130823
  Receipt Date: 20130823
  Transmission Date: 20140515
  Serious: No
  Sender: FDA-Public Use
  Company Number: US-BRISTOL-MYERS SQUIBB COMPANY-17290743

PATIENT
  Age: 29 Year
  Sex: Male
  Weight: 79.36 kg

DRUGS (5)
  1. SPRYCEL [Suspect]
     Indication: CHRONIC MYELOID LEUKAEMIA
     Route: 048
     Dates: start: 201103
  2. MULTIVITAMIN [Concomitant]
  3. CALCIUM [Concomitant]
  4. TRAMADOL [Concomitant]
  5. PERCOCET [Concomitant]

REACTIONS (6)
  - Fatigue [Not Recovered/Not Resolved]
  - Pain [Not Recovered/Not Resolved]
  - Back pain [Not Recovered/Not Resolved]
  - Weight fluctuation [Unknown]
  - Cognitive disorder [Unknown]
  - Myalgia [Unknown]
